FAERS Safety Report 13576197 (Version 1)
Quarter: 2017Q2

REPORT INFORMATION
  Report Type: Spontaneous
  Country: US (occurrence: US)
  Receive Date: 20170524
  Receipt Date: 20170524
  Transmission Date: 20170830
  Serious: No
  Sender: FDA-Public Use
  Company Number: None

PATIENT
  Age: 85 Year
  Sex: Female
  Weight: 63.5 kg

DRUGS (3)
  1. METAFORMIN [Concomitant]
  2. PREMARIN [Suspect]
     Active Substance: ESTROGENS, CONJUGATED
     Indication: URINARY RETENTION
     Route: 067
     Dates: start: 20170302, end: 20170401
  3. MAGANES [Concomitant]

REACTIONS (8)
  - Pain in extremity [None]
  - Abdominal pain [None]
  - Vulvovaginal burning sensation [None]
  - Swollen tongue [None]
  - Vision blurred [None]
  - Abdominal distension [None]
  - Pruritus [None]
  - Fungal infection [None]

NARRATIVE: CASE EVENT DATE: 20170404
